FAERS Safety Report 7243423-8 (Version None)
Quarter: 2011Q1

REPORT INFORMATION
  Report Type: 
  Country: None (occurrence: None)
  Receive Date: 20110125
  Receipt Date: 20110113
  Transmission Date: 20110831
  Serious: Yes (Hospitalization, Other)
  Sender: FDA-Public Use
  Company Number: AU-AMGEN AB-KDL440604

PATIENT
  Age: 63 Year
  Sex: Female

DRUGS (5)
  1. NEULASTA [Suspect]
     Indication: PROPHYLAXIS
  2. NEULASTA [Suspect]
     Indication: CHEMOTHERAPY
     Dosage: UNK UNK, UNK
  3. DOXORUBICIN HYDROCHLORIDE [Concomitant]
  4. DOCETAXEL [Concomitant]
  5. CYCLOPHOSPHAMIDE [Concomitant]

REACTIONS (3)
  - DRUG INEFFECTIVE [None]
  - FEBRILE NEUTROPENIA [None]
  - MALAISE [None]
